FAERS Safety Report 19146524 (Version 1)
Quarter: 2021Q2

REPORT INFORMATION
  Report Type: Spontaneous
  Country: CH (occurrence: CH)
  Receive Date: 20210416
  Receipt Date: 20210416
  Transmission Date: 20210717
  Serious: Yes (Hospitalization, Other)
  Sender: FDA-Public Use
  Company Number: CH-SUN PHARMACEUTICAL INDUSTRIES LTD-2021R1-291427

PATIENT
  Age: 48 Year
  Sex: Female

DRUGS (8)
  1. QUETIAPINE. [Suspect]
     Active Substance: QUETIAPINE
     Dosage: 1 UNK
     Route: 065
     Dates: start: 2017
  2. TRAMADOL. [Suspect]
     Active Substance: TRAMADOL
     Indication: PRODUCT USED FOR UNKNOWN INDICATION
     Dosage: 800 MILLIGRAM XR
     Route: 065
     Dates: start: 2017
  3. PARACETAMOL [Suspect]
     Active Substance: ACETAMINOPHEN
     Indication: PRODUCT USED FOR UNKNOWN INDICATION
     Dosage: EPISODE 1  65 G (1 G TABLETS, IR)
     Route: 065
     Dates: start: 2016
  4. QUETIAPINE. [Suspect]
     Active Substance: QUETIAPINE
     Indication: PRODUCT USED FOR UNKNOWN INDICATION
     Dosage: EPISODE 1 ? 2.5 G QUETIAPINE (XR) 1 G QUETIAPINE (IR)
     Route: 065
     Dates: start: 2016
  5. ALCOHOL. [Suspect]
     Active Substance: ALCOHOL
     Indication: PRODUCT USED FOR UNKNOWN INDICATION
     Dosage: EPISODE 1  ETHANOL (1.42 PERCENT)
     Route: 065
     Dates: start: 2016
  6. PARACETAMOL [Suspect]
     Active Substance: ACETAMINOPHEN
     Dosage: EPISODE 2  65 G (1 G TABLETS, IR)
     Route: 065
     Dates: start: 2017
  7. ALCOHOL. [Suspect]
     Active Substance: ALCOHOL
     Dosage: EPISODE 2 ? ETHANOL (1.91 PERCENT)
     Route: 065
     Dates: start: 2017
  8. DICLOFENAC [Suspect]
     Active Substance: DICLOFENAC
     Indication: PRODUCT USED FOR UNKNOWN INDICATION
     Dosage: 1.5 MILLIGRAM  XR
     Route: 065
     Dates: start: 2017

REACTIONS (4)
  - Intentional overdose [Unknown]
  - Coma [Unknown]
  - Hypotonia [Unknown]
  - Hepatotoxicity [Recovered/Resolved]
